FAERS Safety Report 11444286 (Version 1)
Quarter: 2015Q3

REPORT INFORMATION
  Report Type: Report from Study
  Country: FR (occurrence: FR)
  Receive Date: 20150901
  Receipt Date: 20150901
  Transmission Date: 20151125
  Serious: Yes (Death)
  Sender: FDA-Public Use
  Company Number: FR-009507513-1508FRA013426

PATIENT

DRUGS (1)
  1. EPTIFIBATIDE. [Suspect]
     Active Substance: EPTIFIBATIDE
     Indication: PROPHYLAXIS
     Dosage: 0.2 MG/KG, AN BOLUS, ONCE
     Route: 013

REACTIONS (2)
  - Cerebral haematoma [Fatal]
  - Haemorrhage [Fatal]
